APPROVED DRUG PRODUCT: ERYGEL
Active Ingredient: ERYTHROMYCIN
Strength: 2%
Dosage Form/Route: GEL;TOPICAL
Application: N050617 | Product #001
Applicant: MYLAN PHARMACEUTICALS INC
Approved: Oct 21, 1987 | RLD: Yes | RS: No | Type: DISCN